FAERS Safety Report 21506023 (Version 1)
Quarter: 2022Q4

REPORT INFORMATION
  Report Type: Spontaneous
  Country: NL (occurrence: NL)
  Receive Date: 20221026
  Receipt Date: 20221026
  Transmission Date: 20230113
  Serious: Yes (Hospitalization, Other)
  Sender: FDA-Public Use
  Company Number: NL-SA-2022SA429655

PATIENT
  Age: 55 Year
  Sex: Female

DRUGS (2)
  1. DOCETAXEL [Suspect]
     Active Substance: DOCETAXEL
     Indication: Neoplasm
     Dosage: 75 MG/M2, Q3W
     Route: 042
     Dates: start: 20220706, end: 20220824
  2. EDOXABAN [Concomitant]
     Active Substance: EDOXABAN
     Indication: Pulmonary embolism
     Dosage: 60 MG, QD
     Dates: start: 20220504, end: 2022

REACTIONS (4)
  - Metastases to lymph nodes [Unknown]
  - Condition aggravated [Unknown]
  - Abdominal pain [Not Recovered/Not Resolved]
  - Constipation [Unknown]

NARRATIVE: CASE EVENT DATE: 20220922
